FAERS Safety Report 10674385 (Version 1)
Quarter: 2014Q4

REPORT INFORMATION
  Report Type: Spontaneous
  Country: US (occurrence: US)
  Receive Date: 20141224
  Receipt Date: 20141224
  Transmission Date: 20150529
  Serious: No
  Sender: FDA-Public Use
  Company Number: US-PFIZER INC-2014351981

PATIENT
  Age: 34 Year
  Sex: Female

DRUGS (1)
  1. CEREBYX [Suspect]
     Active Substance: FOSPHENYTOIN SODIUM
     Dosage: UNK

REACTIONS (1)
  - Drug hypersensitivity [Unknown]
